FAERS Safety Report 12745958 (Version 1)
Quarter: 2016Q3

REPORT INFORMATION
  Report Type: Spontaneous
  Country: ZA (occurrence: ZA)
  Receive Date: 20160915
  Receipt Date: 20160915
  Transmission Date: 20161109
  Serious: Yes (Other)
  Sender: FDA-Public Use
  Company Number: ZA-GLAXOSMITHKLINE-ZA2016GSK133903

PATIENT
  Age: 50 Year
  Sex: Female

DRUGS (2)
  1. URBANOL [Concomitant]
     Active Substance: CLOBAZAM
     Indication: STRESS
  2. WELLBUTRIN [Suspect]
     Active Substance: BUPROPION HYDROCHLORIDE
     Indication: PRODUCT USED FOR UNKNOWN INDICATION

REACTIONS (3)
  - Urinary retention [Unknown]
  - Rash [Unknown]
  - Headache [Unknown]
